FAERS Safety Report 4273465-6 (Version None)
Quarter: 2004Q1

REPORT INFORMATION
  Report Type: 
  Country: None (occurrence: None)
  Receive Date: 20040116
  Receipt Date: 20040116
  Transmission Date: 20041129
  Serious: Yes (Hospitalization)
  Sender: FDA-Public Use
  Company Number: None

PATIENT
  Sex: 0

DRUGS (4)
  1. CLONAZEPAM [Suspect]
     Indication: BIPOLAR DISORDER
  2. OLANZAPINE [Suspect]
  3. DIVALPROEX SODIUM [Suspect]
  4. BEERS [Suspect]

REACTIONS (3)
  - OVERDOSE [None]
  - PNEUMONIA ASPIRATION [None]
  - SOMNOLENCE [None]
